FAERS Safety Report 16545257 (Version 1)
Quarter: 2019Q3

REPORT INFORMATION
  Report Type: Report from Study
  Country: IT (occurrence: IT)
  Receive Date: 20190709
  Receipt Date: 20190709
  Transmission Date: 20191004
  Serious: Yes (Other)
  Sender: FDA-Public Use
  Company Number: IT-PFIZER INC-2019286451

PATIENT
  Age: 69 Year
  Sex: Female
  Weight: 67 kg

DRUGS (2)
  1. ADRIBLASTINA [Suspect]
     Active Substance: DOXORUBICIN HYDROCHLORIDE
     Indication: NON-HODGKIN^S LYMPHOMA
     Dosage: 88 MG, TOTAL
     Route: 041
     Dates: start: 20190607, end: 20190607
  2. PALONOSETRON FRESENIUS KABI [Concomitant]
     Indication: PREMEDICATION
     Dosage: 5 MG, UNK
     Route: 041
     Dates: start: 20190607, end: 20190607

REACTIONS (3)
  - Infusion site extravasation [Recovering/Resolving]
  - Infusion site oedema [Recovering/Resolving]
  - Infusion site erythema [Recovering/Resolving]

NARRATIVE: CASE EVENT DATE: 20190607
